FAERS Safety Report 8554305-3 (Version None)
Quarter: 2012Q3

REPORT INFORMATION
  Report Type: 
  Country: None (occurrence: None)
  Receive Date: 20120731
  Receipt Date: 20120724
  Transmission Date: 20120928
  Serious: Yes (Hospitalization, Other)
  Sender: FDA-Public Use
  Company Number: US-ROCHE-783965

PATIENT
  Sex: Male
  Weight: 81.72 kg

DRUGS (2)
  1. ACCUTANE [Suspect]
     Indication: ACNE CYSTIC
     Route: 065
     Dates: start: 19950601, end: 19951001
  2. BENADRYL [Concomitant]

REACTIONS (10)
  - ANAL FISTULA [None]
  - SUICIDAL IDEATION [None]
  - RASH ERYTHEMATOUS [None]
  - INFLAMMATORY BOWEL DISEASE [None]
  - CROHN'S DISEASE [None]
  - ANAL FISSURE [None]
  - ABSCESS RUPTURE [None]
  - STRESS [None]
  - PRURITUS [None]
  - IRRITABLE BOWEL SYNDROME [None]
